FAERS Safety Report 5056177-0 (Version None)
Quarter: 2006Q3

REPORT INFORMATION
  Report Type: 
  Country: None (occurrence: None)
  Receive Date: 20060714
  Receipt Date: 20060627
  Transmission Date: 20061208
  Serious: Yes (Hospitalization)
  Sender: FDA-Public Use
  Company Number: US200604003676

PATIENT
  Sex: Female

DRUGS (2)
  1. FORTEO [Suspect]
     Indication: OSTEOPOROSIS
     Dates: start: 20050101
  2. FORTEO PEN (FORTEO PEN) [Concomitant]

REACTIONS (4)
  - BLOOD ANTIDIURETIC HORMONE INCREASED [None]
  - BLOOD SODIUM DECREASED [None]
  - MENTAL DISORDER [None]
  - SLEEP APNOEA SYNDROME [None]
